APPROVED DRUG PRODUCT: GENESA
Active Ingredient: ARBUTAMINE HYDROCHLORIDE
Strength: 0.05MG/ML
Dosage Form/Route: INJECTABLE;INJECTION
Application: N020420 | Product #001
Applicant: GENSIA AUTOMEDICS INC
Approved: Sep 12, 1997 | RLD: No | RS: No | Type: DISCN